FAERS Safety Report 4930135-6 (Version None)
Quarter: 2006Q1

REPORT INFORMATION
  Report Type: 
  Country: None (occurrence: None)
  Receive Date: 20060228
  Receipt Date: 20060208
  Transmission Date: 20060701
  Serious: Yes (Death)
  Sender: FDA-Public Use
  Company Number: CH200602001758

PATIENT
  Age: 60 Year
  Sex: Female

DRUGS (9)
  1. ZYPREXA [Suspect]
     Indication: MENTAL DISORDER
     Dosage: SEE IMAGE
     Route: 048
     Dates: start: 20050901, end: 20051209
  2. ZYPREXA [Suspect]
     Indication: MENTAL DISORDER
     Dosage: SEE IMAGE
     Route: 048
     Dates: start: 20051210, end: 20051230
  3. BENERVA (THIAMINE HYDROCHLORIDE) [Concomitant]
  4. VITAMIN B1 TAB [Concomitant]
  5. VITAMIN B2 (RIBOFLAVIN) [Concomitant]
  6. VITAMIN B6 [Concomitant]
  7. VITAMIN B12 [Concomitant]
  8. BECOZYM (BIOTIN, CALCIUM PANTHOTHENATE, CYANOCOBALAMIN, NICOTINAMIDE, [Concomitant]
  9. FERRUM HAUSMANN (FERROUS FUMARATE, IRON) [Concomitant]

REACTIONS (2)
  - DEMENTIA [None]
  - TREATMENT NONCOMPLIANCE [None]
